FAERS Safety Report 9200612 (Version 3)
Quarter: 2013Q2

REPORT INFORMATION
  Report Type: Spontaneous
  Country: US (occurrence: US)
  Receive Date: 20130329
  Receipt Date: 20130427
  Transmission Date: 20140414
  Serious: Yes (Death)
  Sender: FDA-Public Use
  Company Number: US-PFIZER INC-2013100177

PATIENT
  Age: 52 Year
  Sex: Male
  Weight: 68.03 kg

DRUGS (8)
  1. CELEBREX [Suspect]
     Indication: INFLAMMATION
     Dosage: 200 MG, UNK
     Route: 048
     Dates: start: 1981
  2. CELEBREX [Suspect]
     Indication: BACK INJURY
     Dosage: 200 MG, 3X/DAY
     Route: 048
     Dates: start: 1994
  3. CELEBREX [Suspect]
     Indication: KNEE OPERATION
  4. HYDROCODONE [Suspect]
     Indication: PAIN
     Dosage: 500 MG, UNK
  5. NEXIUM [Concomitant]
     Dosage: 40 MG, 2X/DAY
  6. NITROSTAT [Concomitant]
     Dosage: UNK
  7. PLAVIX [Concomitant]
     Dosage: 75 MG, 1X/DAY
  8. SIMVASTATIN [Concomitant]
     Dosage: UNK

REACTIONS (7)
  - Coronary artery disease [Fatal]
  - Arterial occlusive disease [Fatal]
  - Amnesia [Unknown]
  - Swelling [Unknown]
  - Chest pain [Unknown]
  - Inappropriate schedule of drug administration [Unknown]
  - Incorrect dose administered [Unknown]
